FAERS Safety Report 10613175 (Version 1)
Quarter: 2014Q4

REPORT INFORMATION
  Report Type: Spontaneous
  Country: US (occurrence: US)
  Receive Date: 20141128
  Receipt Date: 20141128
  Transmission Date: 20150529
  Serious: Yes (Hospitalization, Other)
  Sender: FDA-Public Use
  Company Number: US-AMGEN-USASP2014092081

PATIENT
  Age: 59 Year
  Sex: Female

DRUGS (1)
  1. ENBREL [Suspect]
     Active Substance: ETANERCEPT
     Indication: RHEUMATOID ARTHRITIS
     Dosage: 25 MG, 2 TIMES/WK
     Route: 065
     Dates: start: 1998, end: 20140805

REACTIONS (8)
  - Hip arthroplasty [Recovered/Resolved]
  - Injection site pain [Recovered/Resolved]
  - Incision site infection [Unknown]
  - Neck pain [Not Recovered/Not Resolved]
  - Staphylococcal infection [Unknown]
  - Musculoskeletal stiffness [Not Recovered/Not Resolved]
  - Knee arthroplasty [Recovered/Resolved]
  - Musculoskeletal pain [Not Recovered/Not Resolved]

NARRATIVE: CASE EVENT DATE: 2006
